FAERS Safety Report 14676378 (Version 1)
Quarter: 2018Q1

REPORT INFORMATION
  Report Type: Spontaneous
  Country: US (occurrence: US)
  Receive Date: 20180323
  Receipt Date: 20180323
  Transmission Date: 20180509
  Serious: No
  Sender: FDA-Public Use
  Company Number: None

PATIENT
  Age: 78 Year
  Sex: Female
  Weight: 82.55 kg

DRUGS (13)
  1. SIMVASTATIN. [Concomitant]
     Active Substance: SIMVASTATIN
  2. SUPER B-COMPLEX [Concomitant]
  3. FISH OIL [Concomitant]
     Active Substance: FISH OIL
  4. DIAZAPAM [Concomitant]
     Active Substance: DIAZEPAM
  5. NEULASTA [Suspect]
     Active Substance: PEGFILGRASTIM
     Indication: WHITE BLOOD CELL COUNT DECREASED
     Dosage: PLACED ON MY LEFT ARM
     Dates: start: 201710
  6. CLARTIN [Concomitant]
  7. CALCIUM [Concomitant]
     Active Substance: CALCIUM
  8. MAGNESIUM [Concomitant]
     Active Substance: MAGNESIUM
  9. GINKGO BILOBA [Concomitant]
     Active Substance: GINKGO
  10. VITRON C [Concomitant]
     Active Substance: ASCORBIC ACID\IRON
  11. LISINOPRIL. [Concomitant]
     Active Substance: LISINOPRIL
  12. EXTRA STRENGTH TEYLENOL [Concomitant]
  13. VITAMIN D [Concomitant]
     Active Substance: CHOLECALCIFEROL

REACTIONS (5)
  - Crying [None]
  - Asthenia [None]
  - Myalgia [None]
  - Bone pain [None]
  - Depression [None]

NARRATIVE: CASE EVENT DATE: 201710
